FAERS Safety Report 7099960-2 (Version None)
Quarter: 2010Q4

REPORT INFORMATION
  Report Type: 
  Country: None (occurrence: None)
  Receive Date: 20101112
  Receipt Date: 20101104
  Transmission Date: 20110411
  Serious: Yes (Other)
  Sender: FDA-Public Use
  Company Number: ES-BAYER-201044459GPV

PATIENT
  Sex: Female

DRUGS (1)
  1. ACTIRA [Suspect]
     Indication: RESPIRATORY TRACT INFECTION

REACTIONS (2)
  - GASTROENTERITIS [None]
  - RECTAL HAEMORRHAGE [None]
